FAERS Safety Report 8128446-9 (Version None)
Quarter: 2012Q1

REPORT INFORMATION
  Report Type: 
  Country: None (occurrence: None)
  Receive Date: 20120103
  Receipt Date: 20110831
  Transmission Date: 20120608
  Serious: No
  Sender: FDA-Public Use
  Company Number: AE-2011-001253

PATIENT
  Age: 53 Year
  Sex: Male
  Weight: 56.6996 kg

DRUGS (4)
  1. RIBAPAK (RIBAVIRIN) [Concomitant]
  2. INCIVEK [Suspect]
     Dosage: 2250 MG (750 MG, 1 IN 8 HR), ORAL
     Route: 048
     Dates: start: 20110825
  3. PEGASYS [Concomitant]
  4. SYNTHROID [Concomitant]

REACTIONS (4)
  - BLOOD URINE PRESENT [None]
  - PRURITUS GENERALISED [None]
  - RASH [None]
  - PAIN [None]
